APPROVED DRUG PRODUCT: FUROSEMIDE
Active Ingredient: FUROSEMIDE
Strength: 20MG
Dosage Form/Route: TABLET;ORAL
Application: N018370 | Product #002
Applicant: SUPERPHARM CORP
Approved: Jun 26, 1984 | RLD: No | RS: No | Type: DISCN